FAERS Safety Report 19313901 (Version 1)
Quarter: 2021Q2

REPORT INFORMATION
  Report Type: Spontaneous
  Country: US (occurrence: US)
  Receive Date: 20210527
  Receipt Date: 20210527
  Transmission Date: 20210717
  Serious: Yes (Other)
  Sender: FDA-Public Use
  Company Number: None

PATIENT
  Age: 42 Year
  Sex: Male
  Weight: 90 kg

DRUGS (5)
  1. CELEXA [Concomitant]
     Active Substance: CITALOPRAM HYDROBROMIDE
  2. TRAZODONE [Concomitant]
     Active Substance: TRAZODONE HYDROCHLORIDE
  3. VYEPTI [Suspect]
     Active Substance: EPTINEZUMAB-JJMR
     Indication: MIGRAINE
     Dosage: ?          OTHER FREQUENCY:1 PER 3 MONTH;?
     Route: 042
     Dates: start: 20210525
  4. METOPROLOL. [Concomitant]
     Active Substance: METOPROLOL
  5. SUNOSI [Concomitant]
     Active Substance: SOLRIAMFETOL

REACTIONS (3)
  - Nausea [None]
  - Fatigue [None]
  - Headache [None]

NARRATIVE: CASE EVENT DATE: 20210525
